FAERS Safety Report 24327629 (Version 1)
Quarter: 2024Q3

REPORT INFORMATION
  Report Type: Spontaneous
  Country: CN (occurrence: CN)
  Receive Date: 20240917
  Receipt Date: 20240917
  Transmission Date: 20241017
  Serious: Yes (Hospitalization, Other)
  Sender: MERCK
  Company Number: CN-009507513-2409CHN005168

PATIENT
  Age: 87 Year
  Sex: Male

DRUGS (1)
  1. KEYTRUDA [Suspect]
     Active Substance: PEMBROLIZUMAB
     Indication: Lung squamous cell carcinoma stage IV
     Dosage: 200 MG, ONCE
     Route: 041
     Dates: start: 20240814, end: 20240814

REACTIONS (6)
  - Rash [Recovering/Resolving]
  - Pruritus [Recovering/Resolving]
  - Pneumonia bacterial [Unknown]
  - Pneumonia fungal [Unknown]
  - Drug eruption [Recovering/Resolving]
  - Erythema infectiosum [Recovering/Resolving]

NARRATIVE: CASE EVENT DATE: 20240101
